FAERS Safety Report 6018055-X (Version None)
Quarter: 2008Q4

REPORT INFORMATION
  Report Type: 
  Country: None (occurrence: None)
  Receive Date: 20081223
  Receipt Date: 20081211
  Transmission Date: 20090506
  Serious: Yes (Hospitalization)
  Sender: FDA-Public Use
  Company Number: DE-PFIZER INC-2006113821

PATIENT

DRUGS (5)
  1. SUNITINIB MALATE [Interacting]
     Indication: NON-SMALL CELL LUNG CANCER
     Dosage: 50 MG, 1X/DAY, DAY 1-14
     Route: 048
     Dates: start: 20060406
  2. GEMCITABINE [Interacting]
     Indication: NON-SMALL CELL LUNG CANCER
     Dosage: 1680 MG, 1X/DAY, DAY 1+ 8
     Route: 042
     Dates: start: 20060413, end: 20060908
  3. CISPLATIN [Suspect]
     Indication: NON-SMALL CELL LUNG CANCER
     Dosage: 134.4 MG, 1X/DAY, DAY 1
     Route: 042
     Dates: start: 20060413, end: 20060908
  4. VIANI [Concomitant]
     Route: 055
     Dates: start: 20031001
  5. MUCOFALK [Concomitant]
     Route: 048
     Dates: start: 20060622

REACTIONS (3)
  - DRUG INTERACTION [None]
  - NAUSEA [None]
  - VOMITING [None]
